FAERS Safety Report 10213847 (Version 2)
Quarter: 2014Q2

REPORT INFORMATION
  Report Type: Spontaneous
  Country: CN (occurrence: CN)
  Receive Date: 20140603
  Receipt Date: 20140610
  Transmission Date: 20141212
  Serious: Yes (Other)
  Sender: FDA-Public Use
  Company Number: CN-PFIZER INC-2014147957

PATIENT
  Age: 70 Year
  Sex: Female

DRUGS (12)
  1. VORICONAZOLE [Suspect]
     Indication: ANTI-INFECTIVE THERAPY
     Dosage: 0.2 G, EVERY 12 HOURS
     Route: 041
     Dates: start: 20110630, end: 20110701
  2. CEFTAZIDIME [Concomitant]
     Indication: ANTI-INFECTIVE THERAPY
     Dosage: UNK
     Dates: start: 201106, end: 201106
  3. AZITHROMYCIN [Concomitant]
     Indication: ANTI-INFECTIVE THERAPY
     Dosage: UNK
     Dates: start: 201106, end: 201106
  4. LINEZOLID [Concomitant]
     Indication: ANTI-INFECTIVE THERAPY
     Dosage: 0.6 G, EVERY 12 HOURS
     Dates: start: 20110621
  5. IMIPENEM CILASTINA [Concomitant]
     Indication: ANTI-INFECTIVE THERAPY
     Dosage: 1.0 G, EVERY 8 HOURS
     Dates: start: 20110621, end: 20110625
  6. CASPOFUNGIN [Concomitant]
     Indication: ANTI-INFECTIVE THERAPY
     Dosage: UNK
     Dates: start: 20110622, end: 20110630
  7. CASPOFUNGIN [Concomitant]
     Dosage: UNK
     Dates: start: 201107
  8. ACICLOVIR [Concomitant]
     Indication: ANTI-INFECTIVE THERAPY
     Dosage: UNK
     Dates: start: 20110622
  9. ALBUMIN HUMAN [Concomitant]
     Indication: SUPPORTIVE CARE
     Dosage: UNK
     Dates: start: 20110622
  10. GAMMA GLOBULIN [Concomitant]
     Indication: SUPPORTIVE CARE
     Dosage: UNK
     Dates: start: 20110622
  11. CEFOTAXIME [Concomitant]
     Indication: ANTI-INFECTIVE THERAPY
     Dosage: UNK
     Dates: start: 20110625
  12. VORICONAZOLE [Concomitant]
     Indication: ANTI-INFECTIVE THERAPY
     Dosage: 0.2 G, Q12H
     Dates: start: 20110621, end: 20110621

REACTIONS (2)
  - Type I hypersensitivity [Recovered/Resolved]
  - Bronchospasm [Recovered/Resolved]
